FAERS Safety Report 19295670 (Version 2)
Quarter: 2021Q3

REPORT INFORMATION
  Report Type: Spontaneous
  Country: FR (occurrence: FR)
  Receive Date: 20210524
  Receipt Date: 20210721
  Transmission Date: 20211014
  Serious: Yes (Hospitalization, Other)
  Sender: FDA-Public Use
  Company Number: FR-MYLANLABS-2021M1029667

PATIENT
  Age: 66 Year
  Sex: Female
  Weight: 79 kg

DRUGS (2)
  1. IBRANCE [Suspect]
     Active Substance: PALBOCICLIB
     Indication: BREAST NEOPLASM
     Dosage: 100 MG, QD (IN THE EVENING)
     Route: 048
     Dates: start: 20180214, end: 20201129
  2. LETROZOLE. [Suspect]
     Active Substance: LETROZOLE
     Indication: PRODUCT USED FOR UNKNOWN INDICATION
     Dosage: 2.5 MG, QD IN THE EVENING
     Route: 048
     Dates: start: 20180214

REACTIONS (6)
  - Vertigo [Recovered/Resolved]
  - Vitamin B12 deficiency [Unknown]
  - Anaemia macrocytic [Unknown]
  - Carotid artery aneurysm [Unknown]
  - Osteoarthritis [Recovered/Resolved]
  - Vertigo positional [Recovered/Resolved]

NARRATIVE: CASE EVENT DATE: 20191129
